FAERS Safety Report 20475909 (Version 1)
Quarter: 2022Q1

REPORT INFORMATION
  Report Type: Spontaneous
  Country: US (occurrence: None)
  Receive Date: 20220215
  Receipt Date: 20220215
  Transmission Date: 20220423
  Serious: No
  Sender: FDA-Public Use
  Company Number: None

PATIENT
  Age: 62 Year
  Sex: Female
  Weight: 58.5 kg

DRUGS (16)
  1. HYDROXYCHLOROQUINE [Suspect]
     Active Substance: HYDROXYCHLOROQUINE
     Indication: Lichen planopilaris
     Dosage: FREQUENCY : DAILY;?
     Route: 048
     Dates: start: 20220106, end: 20220109
  2. BUPROPION [Concomitant]
     Active Substance: BUPROPION
  3. LIOTHYRONINE [Concomitant]
     Active Substance: LIOTHYRONINE
  4. LEVOTHYROXINE [Concomitant]
     Active Substance: LEVOTHYROXINE
  5. MONTELUKAST [Concomitant]
     Active Substance: MONTELUKAST SODIUM
  6. CLARITIN [Concomitant]
     Active Substance: LORATADINE
  7. FLUTICASONE PROPIONATE\SALMETEROL XINAFOATE [Concomitant]
     Active Substance: FLUTICASONE PROPIONATE\SALMETEROL XINAFOATE
  8. Ventilin inhaler [Concomitant]
  9. Multivitamin (One A Day Women^s 50+) [Concomitant]
  10. EVENING PRIMROSE OIL\HERBALS [Concomitant]
     Active Substance: EVENING PRIMROSE OIL\HERBALS
  11. VITAMIN D NOS [Concomitant]
     Active Substance: VITAMIN D NOS
  12. SACCHAROMYCES CEREVISIAE [Concomitant]
     Active Substance: SACCHAROMYCES CEREVISIAE
  13. BIOTIN [Concomitant]
     Active Substance: BIOTIN
  14. LUTEIN [Concomitant]
     Active Substance: LUTEIN
  15. Zeaxantin [Concomitant]
  16. VITAMIN B COMPLEX [Concomitant]
     Active Substance: CYANOCOBALAMIN\DEXPANTHENOL\NIACINAMIDE\PYRIDOXINE HYDROCHLORIDE\RIBOFLAVIN 5^-PHOSPHATE SODIUM\THIA

REACTIONS (3)
  - Vision blurred [None]
  - Impaired driving ability [None]
  - Impaired work ability [None]

NARRATIVE: CASE EVENT DATE: 20220106
